FAERS Safety Report 16389894 (Version 1)
Quarter: 2019Q2

REPORT INFORMATION
  Report Type: Report from Study
  Country: ES (occurrence: ES)
  Receive Date: 20190604
  Receipt Date: 20190604
  Transmission Date: 20190711
  Serious: Yes (Life-Threatening, Hospitalization)
  Sender: FDA-Public Use
  Company Number: ES-PURDUE-GBR-2019-0066970

PATIENT
  Age: 7 Year
  Sex: Female
  Weight: 19.6 kg

DRUGS (3)
  1. GM-CSF [Concomitant]
     Active Substance: GRANULOCYTE-MACROPHAGE COLONY-STIMULATING FACTOR
     Indication: NEUROBLASTOMA
     Dosage: CYCLE 5 DOSE 10
     Route: 058
  2. LORAZEPAM. [Concomitant]
     Active Substance: LORAZEPAM
     Indication: ANXIETY
     Dosage: ADMINISTERED  PRIOR TO INFUSION
     Route: 065
     Dates: start: 20180925
  3. MORPHINE SULFATE. [Suspect]
     Active Substance: MORPHINE SULFATE
     Indication: PREMEDICATION
     Dosage: ADMINISTERED PRIOR AND DURING INFUSION
     Route: 065
     Dates: start: 20180925

REACTIONS (1)
  - Laryngeal oedema [Recovered/Resolved]

NARRATIVE: CASE EVENT DATE: 20180925
